FAERS Safety Report 5369520-X (Version None)
Quarter: 2007Q2

REPORT INFORMATION
  Report Type: 
  Country: None (occurrence: None)
  Receive Date: 20070625
  Receipt Date: 20070619
  Transmission Date: 20071010
  Serious: Yes (Life-Threatening, Disabling)
  Sender: FDA-Public Use
  Company Number: B0463645A

PATIENT
  Age: 11 Year
  Sex: Male
  Weight: 31.2 kg

DRUGS (7)
  1. RELENZA [Suspect]
     Indication: INFLUENZA
     Route: 055
     Dates: start: 20070228, end: 20070228
  2. ALESION [Concomitant]
     Route: 048
  3. POLARAMINE [Concomitant]
     Indication: INFLUENZA
     Dosage: 6MG PER DAY
     Route: 048
     Dates: start: 20070228, end: 20070304
  4. HOKUNALIN [Concomitant]
     Route: 062
  5. FLAVERIC [Concomitant]
     Indication: COUGH
     Dosage: 60MG PER DAY
     Route: 048
     Dates: start: 20070228, end: 20070304
  6. MUCODYNE [Concomitant]
     Indication: PRODUCTIVE COUGH
     Dosage: 750MG PER DAY
     Route: 048
     Dates: start: 20070228, end: 20070304
  7. THEOLONG [Concomitant]
     Indication: ASTHMA
     Dosage: 200MG PER DAY
     Route: 048
     Dates: start: 20050114

REACTIONS (5)
  - ABNORMAL BEHAVIOUR [None]
  - DEPRESSED LEVEL OF CONSCIOUSNESS [None]
  - NAUSEA [None]
  - URINARY INCONTINENCE [None]
  - VOMITING [None]
